FAERS Safety Report 9719942 (Version 2)
Quarter: 2014Q1

REPORT INFORMATION
  Report Type: Spontaneous
  Country: US (occurrence: US)
  Receive Date: 20131128
  Receipt Date: 20140124
  Transmission Date: 20141002
  Serious: Yes (Hospitalization)
  Sender: FDA-Public Use
  Company Number: US-ASTRAZENECA-2013SE86276

PATIENT
  Age: 78 Year
  Sex: Male
  Weight: 83.5 kg

DRUGS (17)
  1. SEROQUEL [Suspect]
     Indication: DRUG WITHDRAWAL MAINTENANCE THERAPY
     Route: 048
     Dates: start: 2007
  2. SEROQUEL [Suspect]
     Indication: DRUG WITHDRAWAL MAINTENANCE THERAPY
     Route: 048
     Dates: start: 2007
  3. FERROUS SULFATE [Concomitant]
     Indication: ANAEMIA
     Route: 048
  4. ESCITALOPRAM [Concomitant]
     Route: 048
  5. GABAPENTIN [Concomitant]
     Indication: DYSKINESIA
     Dosage: UNKNOWN BID
     Route: 048
  6. CENTRUM SILVER [Concomitant]
     Indication: VITAMIN SUPPLEMENTATION
     Route: 048
  7. PRAVASTATIN [Concomitant]
     Indication: BLOOD CHOLESTEROL ABNORMAL
     Route: 048
  8. TRICOR [Concomitant]
     Indication: CARDIAC DISORDER
     Route: 048
  9. ASPIRIN [Concomitant]
     Route: 048
  10. PLAVIX [Concomitant]
     Indication: ANTICOAGULANT THERAPY
     Route: 048
  11. VITAMIN D [Concomitant]
     Indication: INFARCTION
     Route: 048
  12. DIOVAN [Concomitant]
     Indication: HYPERTENSION
     Route: 048
  13. VITAMIN E [Concomitant]
     Route: 048
  14. OXYBUTYNIN CHOLORIDE [Concomitant]
     Indication: URINARY INCONTINENCE
     Route: 048
  15. RANITIDINE [Concomitant]
     Indication: HAEMORRHAGE
     Route: 048
  16. ALPRAZOLAM [Concomitant]
     Dosage: UNKNOWN, PRN
     Route: 048
  17. NITROSTAT [Concomitant]
     Dosage: UNKNOWN, PRN
     Route: 048

REACTIONS (7)
  - Renal cancer [Recovered/Resolved]
  - Blood urine present [Recovered/Resolved]
  - Diabetes mellitus [Unknown]
  - Anaemia [Unknown]
  - Dyskinesia [Not Recovered/Not Resolved]
  - Dyskinesia [Not Recovered/Not Resolved]
  - Off label use [Recovered/Resolved]
